FAERS Safety Report 15401844 (Version 1)
Quarter: 2018Q3

REPORT INFORMATION
  Report Type: Spontaneous
  Country: US (occurrence: US)
  Receive Date: 20180919
  Receipt Date: 20180919
  Transmission Date: 20181010
  Serious: No
  Sender: FDA-Public Use
  Company Number: US-SUN PHARMACEUTICAL INDUSTRIES LTD-2017US-157652

PATIENT
  Sex: Female

DRUGS (1)
  1. DIVALPROEX [Suspect]
     Active Substance: DIVALPROEX SODIUM
     Indication: PRODUCT USED FOR UNKNOWN INDICATION
     Dosage: UNK
     Route: 065

REACTIONS (12)
  - Nausea [Unknown]
  - Vision blurred [Unknown]
  - Blood disorder [Unknown]
  - Abdominal pain upper [Unknown]
  - Alopecia [Unknown]
  - Amnesia [Unknown]
  - Oropharyngeal pain [Unknown]
  - Dizziness [Unknown]
  - Vomiting [Unknown]
  - Diplopia [Unknown]
  - Increased appetite [Unknown]
  - Decreased appetite [Unknown]
